FAERS Safety Report 21810297 (Version 2)
Quarter: 2023Q2

REPORT INFORMATION
  Report Type: Report from Study
  Country: US (occurrence: US)
  Receive Date: 20230103
  Receipt Date: 20230417
  Transmission Date: 20230722
  Serious: No
  Sender: FDA-Public Use
  Company Number: US-ABBVIE-4227690

PATIENT
  Age: 29 Year
  Sex: Female
  Weight: 118 kg

DRUGS (4)
  1. HUMIRA [Suspect]
     Active Substance: ADALIMUMAB
     Indication: Crohn^s disease
     Dosage: FORM STRENGTH: 40 MG
     Route: 058
  2. HUMIRA [Suspect]
     Active Substance: ADALIMUMAB
     Dosage: FORM STRENGTH: 40 MG
     Route: 058
     Dates: start: 20220606
  3. Vienna [Concomitant]
     Indication: Product used for unknown indication
     Dosage: 0.1-20MG-MCG
     Route: 048
     Dates: start: 2018
  4. LORATADINE [Concomitant]
     Active Substance: LORATADINE
     Indication: Product used for unknown indication
     Route: 048
     Dates: start: 2019

REACTIONS (2)
  - Rash [Recovered/Resolved]
  - Acne cystic [Unknown]

NARRATIVE: CASE EVENT DATE: 20220831
